FAERS Safety Report 13199620 (Version 1)
Quarter: 2017Q1

REPORT INFORMATION
  Report Type: Spontaneous
  Country: US (occurrence: US)
  Receive Date: 20170208
  Receipt Date: 20170208
  Transmission Date: 20170428
  Serious: No
  Sender: FDA-Public Use
  Company Number: US-AMGEN-USASP2016052759

PATIENT
  Age: 59 Year
  Sex: Female

DRUGS (2)
  1. NEULASTA [Suspect]
     Active Substance: PEGFILGRASTIM
     Indication: NEUTROPENIA
     Dosage: UNK
     Route: 065
  2. DOCETAXEL. [Concomitant]
     Active Substance: DOCETAXEL
     Indication: BREAST CANCER STAGE I
     Dosage: UNK

REACTIONS (16)
  - Pain [Unknown]
  - Abdominal pain upper [Unknown]
  - Fungal infection [Unknown]
  - Back pain [Not Recovered/Not Resolved]
  - Dizziness [Unknown]
  - Gait disturbance [Unknown]
  - Oropharyngeal pain [Unknown]
  - Pharyngitis [Unknown]
  - Device issue [Unknown]
  - Spinal pain [Not Recovered/Not Resolved]
  - Urinary tract infection [Unknown]
  - Bone pain [Unknown]
  - Blood urine present [Unknown]
  - Pelvic pain [Not Recovered/Not Resolved]
  - Hypertension [Unknown]
  - Arthralgia [Not Recovered/Not Resolved]

NARRATIVE: CASE EVENT DATE: 201604
